FAERS Safety Report 6206994-6 (Version None)
Quarter: 2009Q2

REPORT INFORMATION
  Report Type: 
  Country: None (occurrence: None)
  Receive Date: 20090528
  Receipt Date: 20090519
  Transmission Date: 20091009
  Serious: Yes (Hospitalization, Other)
  Sender: FDA-Public Use
  Company Number: PHHY2009GB19715

PATIENT
  Age: 30 Year
  Sex: Male

DRUGS (5)
  1. DICLOFENAC SODIUM [Suspect]
     Indication: PROCTALGIA
     Dosage: UNK
     Route: 048
     Dates: start: 20090503, end: 20090511
  2. ERYTHROMYCIN [Suspect]
     Indication: CELLULITIS
     Dosage: UNK
     Route: 048
     Dates: start: 20090506, end: 20090507
  3. ERYTHROMYCIN [Suspect]
     Indication: ABSCESS
  4. METRONIDAZOLE [Suspect]
     Indication: CELLULITIS
     Dosage: UNK
     Route: 048
     Dates: start: 20090505, end: 20090511
  5. METRONIDAZOLE [Suspect]
     Indication: ABSCESS

REACTIONS (7)
  - ABSCESS DRAINAGE [None]
  - ANAL ABSCESS [None]
  - CELLULITIS [None]
  - LIVER FUNCTION TEST ABNORMAL [None]
  - POST PROCEDURAL COMPLICATION [None]
  - POST PROCEDURAL INFECTION [None]
  - SUBCUTANEOUS ABSCESS [None]
